FAERS Safety Report 25732475 (Version 1)
Quarter: 2025Q3

REPORT INFORMATION
  Report Type: Spontaneous
  Country: US (occurrence: US)
  Receive Date: 20250827
  Receipt Date: 20250827
  Transmission Date: 20251020
  Serious: No
  Sender: RVL PHARMACEUTICALS
  Company Number: US-RVL_Pharmaceuticals-USA-ALL1255202500081

PATIENT
  Age: 76 Year
  Sex: Male

DRUGS (2)
  1. UPNEEQ [Suspect]
     Active Substance: OXYMETAZOLINE HYDROCHLORIDE
     Indication: Eyelid ptosis
     Dosage: OD
     Route: 047
     Dates: end: 20250321
  2. UPNEEQ [Suspect]
     Active Substance: OXYMETAZOLINE HYDROCHLORIDE
     Dosage: OS
     Route: 047
     Dates: end: 20250116

REACTIONS (1)
  - Drug ineffective [Recovered/Resolved]

NARRATIVE: CASE EVENT DATE: 20250115
